FAERS Safety Report 20021274 (Version 2)
Quarter: 2021Q4

REPORT INFORMATION
  Report Type: Spontaneous
  Country: DE (occurrence: DE)
  Receive Date: 20211101
  Receipt Date: 20211108
  Transmission Date: 20220304
  Serious: Yes (Other)
  Sender: FDA-Public Use
  Company Number: None

PATIENT

DRUGS (1)
  1. CYTOTEC [Suspect]
     Active Substance: MISOPROSTOL
     Indication: Labour induction
     Dosage: HALF A TABLET, THEN WHOLE TABLETS AGAIN AND AGAIN UNTIL THE START OF THE BIRTH
     Route: 064
     Dates: start: 20200112, end: 20200115

REACTIONS (5)
  - Foetal exposure during delivery [Unknown]
  - Cyanosis neonatal [Unknown]
  - Polycythaemia neonatorum [Unknown]
  - Dehydration [Unknown]
  - Hypernatraemia [Unknown]

NARRATIVE: CASE EVENT DATE: 20200101
